FAERS Safety Report 16349546 (Version 1)
Quarter: 2019Q2

REPORT INFORMATION
  Report Type: Spontaneous
  Country: US (occurrence: US)
  Receive Date: 20190523
  Receipt Date: 20190523
  Transmission Date: 20190711
  Serious: Yes (Hospitalization)
  Sender: FDA-Public Use
  Company Number: US-TEVA-2019-US-1052759

PATIENT
  Age: 19 Year
  Sex: Male

DRUGS (1)
  1. DEFERASIROX. [Suspect]
     Active Substance: DEFERASIROX
     Indication: HAEMOSIDEROSIS
     Dosage: 15 MG/KG DAILY;
     Route: 065

REACTIONS (4)
  - Metabolic encephalopathy [Recovered/Resolved]
  - Metabolic acidosis [Recovered/Resolved]
  - Hyperammonaemia [Recovered/Resolved]
  - Acute kidney injury [Recovered/Resolved]
